FAERS Safety Report 4499842-6 (Version None)
Quarter: 2004Q4

REPORT INFORMATION
  Report Type: 
  Country: None (occurrence: None)
  Receive Date: 20041112
  Receipt Date: 20041018
  Transmission Date: 20050328
  Serious: Yes (Hospitalization)
  Sender: FDA-Public Use
  Company Number: US-AMGEN-US095973

PATIENT
  Age: 59 Year
  Sex: Male

DRUGS (3)
  1. ENBREL [Suspect]
     Indication: PSORIASIS
     Dates: start: 20040101
  2. ZOCOR [Concomitant]
  3. COZAAR [Concomitant]

REACTIONS (1)
  - CONFUSIONAL STATE [None]
